FAERS Safety Report 17284230 (Version 4)
Quarter: 2020Q2

REPORT INFORMATION
  Report Type: Report from Study
  Country: US (occurrence: US)
  Receive Date: 20200117
  Receipt Date: 20200530
  Transmission Date: 20200713
  Serious: No
  Sender: FDA-Public Use
  Company Number: NVSC2020US010150

PATIENT
  Age: 37 Year
  Sex: Male

DRUGS (2)
  1. COSENTYX [Suspect]
     Active Substance: SECUKINUMAB
     Indication: PSORIASIS
     Dosage: 300 MG, QMO
     Route: 058
  2. COSENTYX [Suspect]
     Active Substance: SECUKINUMAB
     Indication: PSORIASIS
     Dosage: 300 MG, QMO
     Route: 003
     Dates: start: 202001

REACTIONS (3)
  - Psoriasis [Unknown]
  - Incorrect product administration duration [Unknown]
  - Drug ineffective [Unknown]

NARRATIVE: CASE EVENT DATE: 202005
